FAERS Safety Report 8824666 (Version 2)
Quarter: 2013Q1

REPORT INFORMATION
  Report Type: Spontaneous
  Country: DE (occurrence: DE)
  Receive Date: 20121004
  Receipt Date: 20130124
  Transmission Date: 20140127
  Serious: Yes (Other)
  Sender: FDA-Public Use
  Company Number: PHHY2012DE086273

PATIENT
  Sex: Male
  Weight: 80 kg

DRUGS (1)
  1. ZOMETA [Suspect]
     Indication: PROSTATE CANCER
     Dosage: UNK UKN, UNK
     Route: 042
     Dates: end: 201211

REACTIONS (1)
  - Impaired healing [Recovering/Resolving]
